FAERS Safety Report 25586901 (Version 1)
Quarter: 2025Q3

REPORT INFORMATION
  Report Type: Spontaneous
  Country: US (occurrence: US)
  Receive Date: 20250721
  Receipt Date: 20250721
  Transmission Date: 20251020
  Serious: No
  Sender: Phathom Pharmaceuticals
  Company Number: US-PHATHOM PHARMACEUTICALS INC.-2025PHT01164

PATIENT
  Age: 73 Year
  Sex: Female

DRUGS (3)
  1. VOQUEZNA [Suspect]
     Active Substance: VONOPRAZAN FUMARATE
     Dosage: 20 MG, 1X/DAY
     Route: 048
     Dates: start: 20250415, end: 20250501
  2. ALBUTEROL SULFATE [Concomitant]
     Active Substance: ALBUTEROL SULFATE
  3. MONTELUKAST [Concomitant]
     Active Substance: MONTELUKAST

REACTIONS (6)
  - Faeces discoloured [Recovered/Resolved]
  - Dyschezia [Recovered/Resolved]
  - Feeding disorder [Recovered/Resolved]
  - Gastrointestinal disorder [Recovered/Resolved]
  - Thirst [Recovered/Resolved]
  - Dry mouth [Recovered/Resolved]

NARRATIVE: CASE EVENT DATE: 20250101
